FAERS Safety Report 12172960 (Version 3)
Quarter: 2017Q1

REPORT INFORMATION
  Report Type: Report from Study
  Country: US (occurrence: US)
  Receive Date: 20160311
  Receipt Date: 20170214
  Transmission Date: 20170428
  Serious: Yes (Other)
  Sender: FDA-Public Use
  Company Number: US-AMAG PHARMACEUTICALS, INC.-AMAG201600335

PATIENT

DRUGS (3)
  1. FUMARATE DISODIUM [Concomitant]
     Active Substance: DISODIUM FUMARATE
  2. MAKENA [Suspect]
     Active Substance: HYDROXYPROGESTERONE CAPROATE
     Indication: PRODUCT USED FOR UNKNOWN INDICATION
     Dosage: UNK
     Dates: start: 20150914, end: 20160104
  3. PRENATAL VITAMINS [Concomitant]
     Active Substance: VITAMINS
     Dosage: 25MG-800 MCG, QD
     Route: 048

REACTIONS (3)
  - Vaginal haemorrhage [Recovered/Resolved]
  - Premature delivery [Recovered/Resolved]
  - Premature separation of placenta [Recovered/Resolved]

NARRATIVE: CASE EVENT DATE: 20160111
